FAERS Safety Report 8040159-0 (Version None)
Quarter: 2012Q1

REPORT INFORMATION
  Report Type: 
  Country: None (occurrence: None)
  Receive Date: 20120111
  Receipt Date: 20111221
  Transmission Date: 20120608
  Serious: No
  Sender: FDA-Public Use
  Company Number: US-AMGEN-USASP2011068269

PATIENT
  Age: 60 Year
  Sex: Female

DRUGS (2)
  1. ENBREL [Suspect]
     Indication: RHEUMATOID ARTHRITIS
     Dosage: 50 MG, QWK
     Dates: start: 20111101
  2. CORTISONE ACETATE [Concomitant]
     Route: 048

REACTIONS (7)
  - RHINORRHOEA [None]
  - NASOPHARYNGITIS [None]
  - WEIGHT INCREASED [None]
  - FATIGUE [None]
  - INJECTION SITE PAIN [None]
  - RASH [None]
  - HEADACHE [None]
